FAERS Safety Report 23188440 (Version 3)
Quarter: 2024Q1

REPORT INFORMATION
  Report Type: Spontaneous
  Country: JP (occurrence: JP)
  Receive Date: 20231115
  Receipt Date: 20240220
  Transmission Date: 20240409
  Serious: Yes (Death, Other)
  Sender: FDA-Public Use
  Company Number: JP-MSD-M2023-32087

PATIENT
  Age: 86 Year
  Sex: Male

DRUGS (9)
  1. KEYTRUDA [Suspect]
     Active Substance: PEMBROLIZUMAB
     Indication: Non-small cell lung cancer
     Dosage: UNK
     Route: 041
     Dates: start: 2017, end: 2019
  2. KEYTRUDA [Suspect]
     Active Substance: PEMBROLIZUMAB
     Dosage: 200 MILLIGRAM, Q3W
     Route: 041
     Dates: start: 20230713, end: 20230713
  3. PREDONINE [Concomitant]
     Active Substance: PREDNISOLONE
     Dosage: 5 DOSAGE FORM, QD, AFTER BREAKFAST
     Route: 048
  4. LANSOPRAZOLE [Concomitant]
     Active Substance: LANSOPRAZOLE
     Dosage: 1 DOSAGE FORM, QD, AFTER BREAKFAST
     Route: 048
  5. SPIRIVA [Concomitant]
     Active Substance: TIOTROPIUM BROMIDE MONOHYDRATE
     Dosage: 1 DOSAGE FORM, QD, 1 KIT 2 INHALATION
  6. AROTINOLOL HYDROCHLORIDE [Concomitant]
     Active Substance: AROTINOLOL HYDROCHLORIDE
     Dosage: 2 DOSAGE FORM, BID, AFTER BREAKFAST AND DINNER
     Route: 048
  7. AMBROXOL HYDROCHLORIDE [Concomitant]
     Active Substance: AMBROXOL HYDROCHLORIDE
     Dosage: 1 DOSAGE FORM, QD, AFTER DINNER
     Route: 048
  8. FLURBIPROFEN [Concomitant]
     Active Substance: FLURBIPROFEN
     Dosage: UNK
  9. HEPARINOID [Concomitant]
     Dosage: 0.3 PERCENT

REACTIONS (6)
  - Lymphangiosis carcinomatosa [Unknown]
  - Malignant neoplasm progression [Fatal]
  - Benign prostatic hyperplasia [Unknown]
  - Hyperplastic cholecystopathy [Unknown]
  - Osteoarthritis [Unknown]
  - Dyspnoea [Unknown]

NARRATIVE: CASE EVENT DATE: 20230101
